FAERS Safety Report 10655648 (Version 4)
Quarter: 2015Q2

REPORT INFORMATION
  Report Type: Report from Study
  Country: KR (occurrence: KR)
  Receive Date: 20141216
  Receipt Date: 20150409
  Transmission Date: 20150821
  Serious: Yes (Hospitalization)
  Sender: FDA-Public Use
  Company Number: KR-BAYER-2014-184147

PATIENT
  Age: 52 Year
  Sex: Male

DRUGS (7)
  1. LEGALON [Concomitant]
     Active Substance: MILK THISTLE
     Dosage: UNK
  2. SORAFENIB (RAF KINASE INHIBITOR) [Suspect]
     Active Substance: SORAFENIB
     Indication: HEPATOCELLULAR CARCINOMA
     Dosage: UNK
     Dates: start: 20141021, end: 20141208
  3. JURNISTA [Concomitant]
     Active Substance: HYDROMORPHONE HYDROCHLORIDE
     Dosage: UNK
  4. VIREAD [Concomitant]
     Active Substance: TENOFOVIR DISOPROXIL FUMARATE
     Dosage: UNK
  5. HEXAMEDINE [Concomitant]
     Dosage: UNK
  6. URSA [Concomitant]
     Dosage: UNK
  7. MORPHINE SULFATE. [Concomitant]
     Active Substance: MORPHINE SULFATE
     Dosage: UNK

REACTIONS (1)
  - Liver abscess [Not Recovered/Not Resolved]

NARRATIVE: CASE EVENT DATE: 20141210
